FAERS Safety Report 16456302 (Version 1)
Quarter: 2019Q2

REPORT INFORMATION
  Report Type: Spontaneous
  Country: JP (occurrence: JP)
  Receive Date: 20190620
  Receipt Date: 20190620
  Transmission Date: 20190711
  Serious: Yes (Other)
  Sender: FDA-Public Use
  Company Number: JP-PFIZER INC-2019249888

PATIENT
  Sex: Female

DRUGS (1)
  1. MEDROL [Suspect]
     Active Substance: METHYLPREDNISOLONE
     Dosage: 8 MG, UNK
     Route: 048
     Dates: start: 20190402

REACTIONS (3)
  - Gastritis erosive [Unknown]
  - Flatulence [Unknown]
  - Abdominal pain upper [Unknown]
